FAERS Safety Report 7675217-3 (Version None)
Quarter: 2011Q3

REPORT INFORMATION
  Report Type: 
  Country: None (occurrence: None)
  Receive Date: 20110810
  Receipt Date: 20110810
  Transmission Date: 20111222
  Serious: Yes (Other)
  Sender: FDA-Public Use
  Company Number: None

PATIENT
  Age: 66 Year
  Sex: Female
  Weight: 85.275 kg

DRUGS (1)
  1. LYRICA [Suspect]
     Indication: KNEE ARTHROPLASTY
     Dosage: 100MG
     Route: 048
     Dates: start: 20110808, end: 20110809

REACTIONS (1)
  - SOMNOLENCE [None]
